FAERS Safety Report 25140772 (Version 1)
Quarter: 2025Q1

REPORT INFORMATION
  Report Type: Spontaneous
  Country: US (occurrence: US)
  Receive Date: 20250331
  Receipt Date: 20250331
  Transmission Date: 20250408
  Serious: Yes (Other)
  Sender: FRESENIUS KABI
  Company Number: US-FreseniusKabi-FK202504597

PATIENT
  Age: 50 Year
  Sex: Male

DRUGS (1)
  1. PROTAMINE SULFATE [Suspect]
     Active Substance: PROTAMINE SULFATE
     Indication: Coronary artery bypass

REACTIONS (2)
  - Kounis syndrome [Unknown]
  - Hypersensitivity [Unknown]
